FAERS Safety Report 6920868-4 (Version None)
Quarter: 2010Q3

REPORT INFORMATION
  Report Type: 
  Country: None (occurrence: None)
  Receive Date: 20100812
  Receipt Date: 20100806
  Transmission Date: 20110219
  Serious: Yes (Death)
  Sender: FDA-Public Use
  Company Number: MY-BRACCO-000004

PATIENT
  Sex: Female

DRUGS (1)
  1. IOPAMIRO [Suspect]
     Indication: COMPUTERISED TOMOGRAM
     Route: 042
     Dates: start: 20100803, end: 20100803

REACTIONS (1)
  - DYSPNOEA [None]
